FAERS Safety Report 12199325 (Version 1)
Quarter: 2016Q1

REPORT INFORMATION
  Report Type: Spontaneous
  Country: RU (occurrence: RU)
  Receive Date: 20160322
  Receipt Date: 20160322
  Transmission Date: 20160526
  Serious: Yes (Other)
  Sender: FDA-Public Use
  Company Number: RU-ASTRAZENECA-2016SE29239

PATIENT
  Age: 65 Year
  Sex: Female

DRUGS (9)
  1. THROMBO ASS [Concomitant]
     Active Substance: ASPIRIN
     Route: 048
  2. CRESTOR [Suspect]
     Active Substance: ROSUVASTATIN CALCIUM
     Indication: ARTERIOSCLEROSIS CORONARY ARTERY
     Route: 048
     Dates: start: 20151123, end: 20160226
  3. PRESTARIUM [Concomitant]
     Active Substance: PERINDOPRIL
     Route: 048
  4. DIUVER [Concomitant]
     Active Substance: TORSEMIDE
     Route: 048
  5. PLAVIX [Concomitant]
     Active Substance: CLOPIDOGREL BISULFATE
     Route: 048
  6. CONCOR [Concomitant]
     Active Substance: BISOPROLOL FUMARATE
     Route: 048
  7. CRESTOR [Suspect]
     Active Substance: ROSUVASTATIN CALCIUM
     Indication: PERCUTANEOUS CORONARY INTERVENTION
     Route: 048
     Dates: start: 20151123, end: 20160226
  8. CRESTOR [Suspect]
     Active Substance: ROSUVASTATIN CALCIUM
     Indication: CORONARY ARTERY DISEASE
     Route: 048
     Dates: start: 20151123, end: 20160226
  9. VEROSPIRON [Concomitant]
     Active Substance: SPIRONOLACTONE
     Route: 048

REACTIONS (3)
  - Hepatic steatosis [Unknown]
  - Cholecystitis chronic [Unknown]
  - Pancreatitis chronic [Unknown]
